FAERS Safety Report 5702133-6 (Version None)
Quarter: 2008Q2

REPORT INFORMATION
  Report Type: 
  Country: None (occurrence: None)
  Receive Date: 20080411
  Receipt Date: 20080401
  Transmission Date: 20081010
  Serious: Yes (Hospitalization)
  Sender: FDA-Public Use
  Company Number: US-AMGEN-STX272542

PATIENT
  Sex: Female

DRUGS (1)
  1. ENBREL [Suspect]
     Indication: RHEUMATOID ARTHRITIS
     Route: 058
     Dates: start: 20060401

REACTIONS (9)
  - BREAST MASS [None]
  - CHOLELITHIASIS [None]
  - DEEP VEIN THROMBOSIS [None]
  - DRUG INEFFECTIVE [None]
  - LYMPHADENOPATHY [None]
  - OVARIAN CYST [None]
  - PHARYNGOLARYNGEAL PAIN [None]
  - PULMONARY EMBOLISM [None]
  - TONSILLITIS [None]
